FAERS Safety Report 19056997 (Version 3)
Quarter: 2021Q3

REPORT INFORMATION
  Report Type: Report from Study
  Country: DO (occurrence: DO)
  Receive Date: 20210325
  Receipt Date: 20210909
  Transmission Date: 20211014
  Serious: Yes (Life-Threatening)
  Sender: FDA-Public Use
  Company Number: NVSC2021DO068447

PATIENT
  Sex: Female
  Weight: 65.77 kg

DRUGS (5)
  1. EXFORGE [Suspect]
     Active Substance: AMLODIPINE BESYLATE\VALSARTAN
     Dosage: 10/320 MG (START DATE: 5 YEARS AGO)
     Route: 065
     Dates: end: 20210318
  2. CONCOR [Concomitant]
     Active Substance: BISOPROLOL FUMARATE
     Indication: HEART RATE ABNORMAL
     Dosage: UNK
     Route: 065
  3. EXFORGE [Suspect]
     Active Substance: AMLODIPINE BESYLATE\VALSARTAN
     Dosage: 5/320 MG
     Route: 065
  4. EXFORGE [Suspect]
     Active Substance: AMLODIPINE BESYLATE\VALSARTAN
     Dosage: 5/320 MG
     Route: 065
     Dates: start: 20210318
  5. EXFORGE [Suspect]
     Active Substance: AMLODIPINE BESYLATE\VALSARTAN
     Indication: HYPERTENSION
     Dosage: 5/320 MG (START DATE: 7 YEARS AGO, STOP DATE: 5 YEARS AGO)
     Route: 065

REACTIONS (3)
  - Hypertensive crisis [Unknown]
  - Asthenia [Unknown]
  - Blood pressure decreased [Unknown]
